FAERS Safety Report 7364906-6 (Version None)
Quarter: 2011Q1

REPORT INFORMATION
  Report Type: 
  Country: None (occurrence: None)
  Receive Date: 20110321
  Receipt Date: 20110316
  Transmission Date: 20110831
  Serious: Yes (Life-Threatening)
  Sender: FDA-Public Use
  Company Number: SE-ASTRAZENECA-2011SE14958

PATIENT
  Age: 74 Year
  Sex: Female

DRUGS (3)
  1. SELOKEN ZOK [Suspect]
     Route: 048
     Dates: end: 20110217
  2. TROMBYL [Concomitant]
  3. SELOKEN ZOK [Suspect]
     Indication: ATRIAL FIBRILLATION
     Route: 048
     Dates: start: 20110127

REACTIONS (2)
  - PROTHROMBIN LEVEL DECREASED [None]
  - MIXED LIVER INJURY [None]
